FAERS Safety Report 7541066-X (Version None)
Quarter: 2011Q2

REPORT INFORMATION
  Report Type: 
  Country: None (occurrence: None)
  Receive Date: 20110610
  Receipt Date: 20110603
  Transmission Date: 20111010
  Serious: Yes (Hospitalization, Other)
  Sender: FDA-Public Use
  Company Number: US-ROCHE-610569

PATIENT
  Sex: Male
  Weight: 72.6 kg

DRUGS (3)
  1. ACCUTANE [Suspect]
     Route: 065
     Dates: start: 19990831, end: 19991029
  2. ACCUTANE [Suspect]
     Route: 065
     Dates: start: 19990803, end: 19990830
  3. ACCUTANE [Suspect]
     Indication: ACNE
     Route: 065
     Dates: start: 19990607, end: 19990802

REACTIONS (9)
  - SUICIDAL IDEATION [None]
  - ANAL FISSURE [None]
  - RASH PAPULAR [None]
  - INFLAMMATORY BOWEL DISEASE [None]
  - LIP DRY [None]
  - HAEMORRHOIDS [None]
  - DEPRESSION [None]
  - DRY SKIN [None]
  - COLITIS ULCERATIVE [None]
